FAERS Safety Report 13453165 (Version 1)
Quarter: 2017Q2

REPORT INFORMATION
  Report Type: Spontaneous
  Country: DE (occurrence: DE)
  Receive Date: 20170418
  Receipt Date: 20170418
  Transmission Date: 20170830
  Serious: Yes (Other)
  Sender: FDA-Public Use
  Company Number: DE-TEVA-760514GER

PATIENT
  Sex: Female

DRUGS (1)
  1. IBU-LYSIN-RATIOPHARM 684 MG FILMTABLETTEN [Suspect]
     Active Substance: IBUPROFEN LYSINE
     Dosage: DAILY USE FOR YEARS
     Route: 048

REACTIONS (4)
  - Agitation [Unknown]
  - Irritability [Unknown]
  - Drug use disorder [Unknown]
  - Belligerence [Unknown]
